FAERS Safety Report 11190950 (Version 3)
Quarter: 2015Q3

REPORT INFORMATION
  Report Type: Spontaneous
  Country: US (occurrence: US)
  Receive Date: 20150615
  Receipt Date: 20150722
  Transmission Date: 20151125
  Serious: Yes (Other)
  Sender: FDA-Public Use
  Company Number: US-PFIZER INC-2015198123

PATIENT
  Age: 66 Year
  Sex: Female
  Weight: 88 kg

DRUGS (10)
  1. REMICADE [Concomitant]
     Active Substance: INFLIXIMAB
     Indication: SYSTEMIC LUPUS ERYTHEMATOSUS
  2. RECLAST [Concomitant]
     Active Substance: ZOLEDRONIC ACID
     Indication: ARTHRITIS
     Dosage: CYCLIC, ONCE A YEAR
     Route: 042
  3. REMICADE [Concomitant]
     Active Substance: INFLIXIMAB
     Indication: OSTEOARTHRITIS
     Dosage: CYCLIC, EVERY 6 WEEKS
     Route: 042
  4. PRILOSEC [Concomitant]
     Active Substance: OMEPRAZOLE MAGNESIUM
     Dosage: UNK, 2X/DAY, BEFORE BREAKFAST AND DINNER
     Route: 048
  5. METHOTREXATE [Concomitant]
     Active Substance: METHOTREXATE
     Indication: ARTHRITIS
     Dosage: 14 MG, WEEKLY, EVERY FRIDAY
     Route: 048
  6. CELEBREX [Suspect]
     Active Substance: CELECOXIB
     Indication: PSORIATIC ARTHROPATHY
     Dosage: 200 MG, 2X/DAY
     Route: 048
  7. FLEXERIL [Concomitant]
     Active Substance: CYCLOBENZAPRINE HYDROCHLORIDE
     Dosage: 10 MG, 1X/DAY, AT NIGHT
     Route: 048
  8. CALCIUM [Concomitant]
     Active Substance: CALCIUM
     Dosage: 1500 MG, DAILY
     Route: 048
  9. CELEBREX [Suspect]
     Active Substance: CELECOXIB
     Indication: SYSTEMIC LUPUS ERYTHEMATOSUS
  10. FOLIC ACID. [Concomitant]
     Active Substance: FOLIC ACID
     Dosage: 1 MG, 1X/DAY

REACTIONS (4)
  - Eye disorder [Unknown]
  - Corneal abrasion [Unknown]
  - Cataract [Recovering/Resolving]
  - Retinal disorder [Recovering/Resolving]

NARRATIVE: CASE EVENT DATE: 201408
